FAERS Safety Report 7768750-7 (Version None)
Quarter: 2011Q3

REPORT INFORMATION
  Report Type: 
  Country: None (occurrence: None)
  Receive Date: 20110922
  Receipt Date: 20110610
  Transmission Date: 20111222
  Serious: No
  Sender: FDA-Public Use
  Company Number: US-ASTRAZENECA-2011SE35687

PATIENT
  Sex: Female
  Weight: 57.2 kg

DRUGS (2)
  1. SEROQUEL [Suspect]
     Indication: SLEEP DISORDER
     Route: 048
     Dates: start: 20110515
  2. PRISTIQ [Concomitant]

REACTIONS (2)
  - OFF LABEL USE [None]
  - SOMNOLENCE [None]
